FAERS Safety Report 8123131-1 (Version None)
Quarter: 2012Q1

REPORT INFORMATION
  Report Type: 
  Country: None (occurrence: None)
  Receive Date: 20120206
  Receipt Date: 20120126
  Transmission Date: 20120608
  Serious: Yes (Hospitalization, Other)
  Sender: FDA-Public Use
  Company Number: ACO_29186_2012

PATIENT
  Age: 64 Year
  Sex: Female
  Weight: 72.6 kg

DRUGS (11)
  1. PERCOCET [Concomitant]
  2. CRESTOR [Concomitant]
  3. CENTRUM SILVER /01292501/(ASCORBIC ACID, CALCIUM, MINERALS NOS, RETINO [Concomitant]
  4. GABAPENTIN [Concomitant]
  5. VALIUM [Concomitant]
  6. PLAVIX (CLOPIDOGREL BISUULFATE) [Concomitant]
  7. VITAMIN B1 TAB [Concomitant]
  8. CYMBALTA [Concomitant]
  9. CYCLOBENZAPRINE HYDROCHLORIDE [Concomitant]
  10. AMPYRA [Suspect]
     Indication: GAIT DISTURBANCE
     Dosage: 10MG, Q 12 H
     Dates: start: 20111027, end: 20111204
  11. ALENDRONATE SODIUM [Concomitant]

REACTIONS (17)
  - ANKLE FRACTURE [None]
  - DYSURIA [None]
  - ABDOMINAL DISTENSION [None]
  - WEIGHT DECREASED [None]
  - PYREXIA [None]
  - COMPRESSION FRACTURE [None]
  - FALL [None]
  - VISUAL IMPAIRMENT [None]
  - SPINAL COMPRESSION FRACTURE [None]
  - ABDOMINAL RIGIDITY [None]
  - BACK PAIN [None]
  - DRUG INEFFECTIVE [None]
  - JOINT DISLOCATION [None]
  - RENAL FAILURE [None]
  - DECREASED APPETITE [None]
  - CONVULSION [None]
  - CHROMATURIA [None]
